FAERS Safety Report 7580987-9 (Version None)
Quarter: 2011Q2

REPORT INFORMATION
  Report Type: 
  Country: None (occurrence: None)
  Receive Date: 20110629
  Receipt Date: 20110606
  Transmission Date: 20111010
  Serious: Yes (Other)
  Sender: FDA-Public Use
  Company Number: DE-ABBOTT-11P-062-0834422-00

PATIENT
  Sex: Male

DRUGS (1)
  1. TESTOSTERONE [Suspect]
     Indication: PITUITARY TUMOUR
     Route: 062

REACTIONS (2)
  - POLYCYTHAEMIA [None]
  - CEREBRAL ARTERY EMBOLISM [None]
